FAERS Safety Report 7499989-6 (Version None)
Quarter: 2011Q2

REPORT INFORMATION
  Report Type: 
  Country: None (occurrence: None)
  Receive Date: 20110524
  Receipt Date: 20110509
  Transmission Date: 20111010
  Serious: No
  Sender: FDA-Public Use
  Company Number: US-B.I. PHARMACEUTICALS,INC./RIDGEFIELD-2011-BP-12671BP

PATIENT
  Age: 79 Year
  Sex: Male

DRUGS (5)
  1. PRADAXA [Suspect]
     Indication: ATRIAL FIBRILLATION
     Dosage: 300 MG
     Route: 048
     Dates: start: 20110201
  2. VITAMIN-MINERAL COMPOUND TAB [Concomitant]
     Indication: MACULAR DEGENERATION
  3. VIT B12 [Concomitant]
     Indication: SUPPLEMENTATION THERAPY
  4. B COMPLEX VIT [Concomitant]
     Indication: SUPPLEMENTATION THERAPY
  5. CA + VIT D [Concomitant]
     Indication: SUPPLEMENTATION THERAPY

REACTIONS (2)
  - DYSPEPSIA [None]
  - FLATULENCE [None]
